FAERS Safety Report 4739936-0 (Version None)
Quarter: 2005Q3

REPORT INFORMATION
  Report Type: 
  Country: None (occurrence: None)
  Receive Date: 20050810
  Receipt Date: 20030923
  Transmission Date: 20060218
  Serious: No
  Sender: FDA-Public Use
  Company Number: US-GLAXOSMITHKLINE-A0428595A

PATIENT
  Sex: Female

DRUGS (2)
  1. PAXIL [Suspect]
     Route: 048
     Dates: start: 19980101
  2. WELLBUTRIN [Concomitant]

REACTIONS (1)
  - DRUG WITHDRAWAL SYNDROME [None]
